FAERS Safety Report 5155347-0 (Version None)
Quarter: 2006Q4

REPORT INFORMATION
  Report Type: 
  Country: None (occurrence: None)
  Receive Date: 20061114
  Receipt Date: 20061101
  Transmission Date: 20070319
  Serious: Yes (Other)
  Sender: FDA-Public Use
  Company Number: 2006133949

PATIENT

DRUGS (2)
  1. RELPAX [Suspect]
  2. EFFEXOR [Suspect]

REACTIONS (2)
  - CONVULSION [None]
  - HYPOAESTHESIA [None]
